FAERS Safety Report 11258066 (Version 3)
Quarter: 2015Q3

REPORT INFORMATION
  Report Type: Spontaneous
  Country: US (occurrence: None)
  Receive Date: 20150619
  Receipt Date: 20150924
  Transmission Date: 20151125
  Serious: Yes (Other)
  Sender: FDA-Public Use
  Company Number: 1713747-2015-999175

PATIENT
  Age: 47 Year
  Sex: Male
  Weight: 78.3 kg

DRUGS (7)
  1. LIBERTY SET [Concomitant]
  2. DELFLEX [Suspect]
     Active Substance: CALCIUM CHLORIDE\DEXTROSE MONOHYDRATE\MAGNESIUM CHLORIDE\SODIUM CHLORIDE\SODIUM LACTATE
     Indication: PERITONEAL DIALYSIS
     Route: 033
  3. CALCITIRIOL [Concomitant]
  4. NEPHRO-VITE [Concomitant]
  5. PHOSLO [Concomitant]
     Active Substance: CALCIUM ACETATE
  6. LIBERTY CYCLER [Concomitant]
     Active Substance: DEVICE
  7. VITAMIN D2 [Concomitant]
     Active Substance: ERGOCALCIFEROL

REACTIONS (1)
  - Peritonitis [None]

NARRATIVE: CASE EVENT DATE: 20150504
